FAERS Safety Report 8129783-4 (Version None)
Quarter: 2012Q1

REPORT INFORMATION
  Report Type: 
  Country: None (occurrence: None)
  Receive Date: 20120210
  Receipt Date: 20120210
  Transmission Date: 20120608
  Serious: Yes (Other)
  Sender: FDA-Public Use
  Company Number: None

PATIENT
  Age: 60 Year
  Sex: Female
  Weight: 87.996 kg

DRUGS (2)
  1. DIOVAN [Suspect]
     Indication: HYPERTENSION
     Dosage: 1 - 80 MG.
     Dates: start: 20110227, end: 20110813
  2. DIOVAN [Concomitant]
     Dosage: 1 - 160 MG.
     Dates: start: 20110813, end: 20120202

REACTIONS (1)
  - ALOPECIA [None]
